FAERS Safety Report 6825027-1 (Version None)
Quarter: 2010Q3

REPORT INFORMATION
  Report Type: 
  Country: None (occurrence: None)
  Receive Date: 20100708
  Receipt Date: 20070119
  Transmission Date: 20110219
  Serious: No
  Sender: FDA-Public Use
  Company Number: US-PFIZER INC-2006142920

PATIENT
  Sex: Female
  Weight: 116.57 kg

DRUGS (1)
  1. CHANTIX [Suspect]
     Indication: SMOKING CESSATION THERAPY
     Dates: start: 20061107

REACTIONS (6)
  - DIZZINESS [None]
  - DYSGEUSIA [None]
  - HYPERVENTILATION [None]
  - INCORRECT DOSE ADMINISTERED [None]
  - NAUSEA [None]
  - PARAESTHESIA [None]
